FAERS Safety Report 8289036-0 (Version None)
Quarter: 2012Q2

REPORT INFORMATION
  Report Type: 
  Country: None (occurrence: None)
  Receive Date: 20120417
  Receipt Date: 20120404
  Transmission Date: 20120825
  Serious: Yes (Other)
  Sender: FDA-Public Use
  Company Number: JP-SANOFI-AVENTIS-2012SA024387

PATIENT
  Sex: Female
  Weight: 42 kg

DRUGS (3)
  1. SOLOSTAR [Suspect]
     Indication: DEVICE THERAPY
     Dates: start: 20101227
  2. REGULAR INSULIN [Concomitant]
     Indication: TYPE 2 DIABETES MELLITUS
     Dosage: BID AT BREAKFAST AND DINNER.
     Route: 058
     Dates: start: 20110428
  3. LANTUS [Suspect]
     Indication: TYPE 2 DIABETES MELLITUS
     Route: 058
     Dates: start: 20101227

REACTIONS (3)
  - HYPOGLYCAEMIA [None]
  - NEOPLASM MALIGNANT [None]
  - ALBUMINURIA [None]
